FAERS Safety Report 18645614 (Version 1)
Quarter: 2020Q4

REPORT INFORMATION
  Report Type: Report from Study
  Country: US (occurrence: US)
  Receive Date: 20201221
  Receipt Date: 20201221
  Transmission Date: 20210114
  Serious: Yes (Other)
  Sender: FDA-Public Use
  Company Number: US-SUNOVION-2020SUN003781

PATIENT
  Sex: Female

DRUGS (2)
  1. KYNMOBI [Suspect]
     Active Substance: APOMORPHINE HYDROCHLORIDE
     Dosage: 10 MG
     Route: 060
     Dates: start: 20201214
  2. LEVODOPA CARBID [Concomitant]
     Active Substance: CARBIDOPA\LEVODOPA

REACTIONS (14)
  - Vomiting [Recovering/Resolving]
  - Dizziness [Recovering/Resolving]
  - Heart rate decreased [Recovering/Resolving]
  - Fatigue [Recovering/Resolving]
  - Retching [Recovering/Resolving]
  - Feeling abnormal [Recovering/Resolving]
  - Pallor [Recovering/Resolving]
  - Altered state of consciousness [Recovering/Resolving]
  - Nausea [Recovering/Resolving]
  - Feeling hot [Recovering/Resolving]
  - Hypotension [Recovering/Resolving]
  - Tremor [Recovering/Resolving]
  - Hyperhidrosis [Recovering/Resolving]
  - Somnolence [Recovering/Resolving]
